FAERS Safety Report 9478061 (Version 1)
Quarter: 2013Q3

REPORT INFORMATION
  Report Type: Spontaneous
  Country: US (occurrence: None)
  Receive Date: 20130813
  Receipt Date: 20130813
  Transmission Date: 20140515
  Serious: Yes (Death)
  Sender: FDA-Public Use
  Company Number: IT-ITGA-IG1444

PATIENT
  Age: 77 Year
  Sex: Male

DRUGS (4)
  1. FLEBOGAMMA [Suspect]
     Indication: IMMUNE-MEDIATED NECROTISING MYOPATHY
     Route: 042
     Dates: start: 20130724, end: 20130725
  2. ACETYLSALICYLIC ACID DILTIAZEM HYDROCHLORIDE [Concomitant]
  3. HUMALOG INSULIN GLARGINE [Concomitant]
  4. METHYLPREDNISOLONE VENITAL [Concomitant]

REACTIONS (2)
  - Tachycardia [None]
  - Pulmonary embolism [None]
